FAERS Safety Report 10068699 (Version 2)
Quarter: 2014Q2

REPORT INFORMATION
  Report Type: Spontaneous
  Country: US (occurrence: US)
  Receive Date: 20140409
  Receipt Date: 20140409
  Transmission Date: 20141212
  Serious: No
  Sender: FDA-Public Use
  Company Number: US-MYLANLABS-2014S1003077

PATIENT
  Age: 52 Year
  Sex: Male

DRUGS (2)
  1. METOPROLOL SUCCINATE EXTENDED-RELEASE TABLETS USP [Suspect]
     Indication: ARRHYTHMIA
     Route: 048
     Dates: start: 20140116, end: 20140206
  2. METOPROLOL SUCCINATE EXTENDED-RELEASE TABLETS USP [Suspect]
     Indication: OFF LABEL USE
     Route: 048
     Dates: start: 20140116, end: 20140206

REACTIONS (2)
  - Drug ineffective for unapproved indication [Recovered/Resolved]
  - Palpitations [Recovered/Resolved]
